FAERS Safety Report 4765032-2 (Version None)
Quarter: 2005Q3

REPORT INFORMATION
  Report Type: 
  Country: None (occurrence: None)
  Receive Date: 20050907
  Receipt Date: 20050823
  Transmission Date: 20060218
  Serious: Yes (Other)
  Sender: FDA-Public Use
  Company Number: 200511728BWH

PATIENT

DRUGS (1)
  1. TRASYLOL [Suspect]

REACTIONS (1)
  - THROMBOTIC THROMBOCYTOPENIC PURPURA [None]
